FAERS Safety Report 16767131 (Version 1)
Quarter: 2019Q4

REPORT INFORMATION
  Report Type: Spontaneous
  Country: US (occurrence: US)
  Receive Date: 20190902
  Receipt Date: 20190902
  Transmission Date: 20200122
  Serious: Yes (Disabling, Other)
  Sender: FDA-Public Use
  Company Number: None

PATIENT
  Age: 32 Year
  Sex: Female
  Weight: 76.5 kg

DRUGS (2)
  1. METHYLDOPA. [Suspect]
     Active Substance: METHYLDOPA
     Indication: HYPERTENSION
  2. METHYLDOPA. [Suspect]
     Active Substance: METHYLDOPA
     Indication: PREGNANCY

REACTIONS (1)
  - Autoimmune hepatitis [None]

NARRATIVE: CASE EVENT DATE: 20190204
